FAERS Safety Report 11712933 (Version 2)
Quarter: 2015Q4

REPORT INFORMATION
  Report Type: Spontaneous
  Country: TR (occurrence: TR)
  Receive Date: 20151108
  Receipt Date: 20151124
  Transmission Date: 20160304
  Serious: Yes (Other)
  Sender: FDA-Public Use
  Company Number: TR-AMGEN-TURSP2015110847

PATIENT
  Age: 55 Year
  Sex: Female

DRUGS (9)
  1. ENBREL [Suspect]
     Active Substance: ETANERCEPT
     Indication: ANKYLOSING SPONDYLITIS
     Dosage: 50 MG, WEEKLY
     Route: 058
     Dates: start: 20150902, end: 20151106
  2. INH [Concomitant]
     Active Substance: ISONIAZID
     Dosage: UNK
     Dates: start: 2014
  3. LIPOFEN [Concomitant]
     Active Substance: FENOFIBRATE
     Dosage: UNK
  4. COVERSYL                           /00790702/ [Concomitant]
     Active Substance: PERINDOPRIL
     Dosage: UNK
  5. STARLIX [Concomitant]
     Active Substance: NATEGLINIDE
     Dosage: UNK
  6. PANTO                              /00223901/ [Concomitant]
     Dosage: UNK
  7. IBUPROFEN. [Concomitant]
     Active Substance: IBUPROFEN
     Dosage: UNK
  8. SANELOC [Concomitant]
     Dosage: UNK
  9. SIRDALUD [Concomitant]
     Active Substance: TIZANIDINE
     Dosage: UNK

REACTIONS (9)
  - Haematochezia [Recovering/Resolving]
  - Abdominal pain upper [Not Recovered/Not Resolved]
  - Injection site erythema [Not Recovered/Not Resolved]
  - Gastrointestinal haemorrhage [Unknown]
  - Injection site reaction [Not Recovered/Not Resolved]
  - Pancreatic neoplasm [Unknown]
  - Injection site pruritus [Not Recovered/Not Resolved]
  - Hypersensitivity [Not Recovered/Not Resolved]
  - Injection site swelling [Not Recovered/Not Resolved]

NARRATIVE: CASE EVENT DATE: 2015
